FAERS Safety Report 13707265 (Version 3)
Quarter: 2017Q3

REPORT INFORMATION
  Report Type: Spontaneous
  Country: PT (occurrence: PT)
  Receive Date: 20170630
  Receipt Date: 20170717
  Transmission Date: 20171127
  Serious: Yes (Hospitalization, Other)
  Sender: FDA-Public Use
  Company Number: PT-REGENERON PHARMACEUTICALS, INC.-2017-18055

PATIENT

DRUGS (25)
  1. CRESTOR [Concomitant]
     Active Substance: ROSUVASTATIN CALCIUM
     Indication: HYPERCHOLESTEROLAEMIA
     Dosage: 20 MG, QD
     Route: 048
     Dates: start: 2008
  2. METHYLDOPA. [Concomitant]
     Active Substance: METHYLDOPA
     Indication: HYPERTENSION
     Dosage: 62.5 MG, QD
     Route: 048
     Dates: start: 20160419
  3. APIDRA [Concomitant]
     Active Substance: INSULIN GLULISINE
     Indication: TYPE 2 DIABETES MELLITUS
     Dosage: 6 U, BID
     Route: 058
     Dates: start: 20160402
  4. AFLIBERCEPT IAI [Suspect]
     Active Substance: AFLIBERCEPT
     Dosage: 50 ?L, ONCE (OD)
     Route: 031
     Dates: start: 20160921, end: 20160921
  5. HIGROTON [Concomitant]
     Active Substance: CHLORTHALIDONE
     Indication: HYPERTENSION
     Dosage: 12.5 MG, BID
     Route: 048
  6. HIGROTON [Concomitant]
     Active Substance: CHLORTHALIDONE
  7. AFLIBERCEPT IAI [Suspect]
     Active Substance: AFLIBERCEPT
     Dosage: 50 ?L, ONCE (OD)
     Route: 031
     Dates: start: 20160509, end: 20160509
  8. CO-DIOVAN [Concomitant]
     Active Substance: HYDROCHLOROTHIAZIDE\VALSARTAN
     Indication: HYPERTENSION
     Dosage: 1 DF, QD
     Route: 048
     Dates: start: 20160419
  9. AFLIBERCEPT IAI [Suspect]
     Active Substance: AFLIBERCEPT
     Indication: DIABETIC RETINAL OEDEMA
     Dosage: 50 ?L, ONCE TOTAL NUMBER OF DOSES PRIOR THE EVENT: 9. LAST DOSE PRIOR EVENT: 15-MAR-2017 (OD)
     Route: 031
     Dates: start: 20160411, end: 20160411
  10. AFLIBERCEPT IAI [Suspect]
     Active Substance: AFLIBERCEPT
     Dosage: 50 ?L, ONCE (OD)
     Route: 031
     Dates: start: 20160629, end: 20160629
  11. AFLIBERCEPT IAI [Suspect]
     Active Substance: AFLIBERCEPT
     Dosage: 50 ?L, ONCE (OD)
     Route: 031
     Dates: start: 20160728, end: 20160728
  12. FENILEFRINA                        /00116302/ [Concomitant]
     Indication: FUNDOSCOPY NORMAL
     Dosage: 100 MG/ML, ONCE
     Route: 047
     Dates: start: 20170403, end: 20170403
  13. ESCITALOPRAM [Concomitant]
     Active Substance: ESCITALOPRAM OXALATE
     Indication: DEPRESSION
     Dosage: 10 MG, QD
     Route: 048
     Dates: start: 2012
  14. NEBIVOLOL. [Concomitant]
     Active Substance: NEBIVOLOL
     Indication: HYPERTENSION
     Dosage: 5 MG, QD
     Route: 048
     Dates: start: 20160402
  15. VELMETIA [Concomitant]
     Active Substance: METFORMIN\SITAGLIPTIN
     Indication: TYPE 2 DIABETES MELLITUS
     Dosage: 1 DF, BID
     Route: 048
     Dates: start: 20160402
  16. AFLIBERCEPT IAI [Suspect]
     Active Substance: AFLIBERCEPT
     Dosage: 50 ?L, ONCE (OD)
     Route: 031
     Dates: start: 20170118, end: 20170118
  17. AMLODIPINE W/VALSARTAN [Concomitant]
     Active Substance: AMLODIPINE\VALSARTAN
     Indication: HYPERTENSION
     Dosage: 1 DF, BID
     Route: 048
     Dates: start: 20160402
  18. LANTUS [Concomitant]
     Active Substance: INSULIN GLARGINE
     Indication: TYPE 2 DIABETES MELLITUS
     Dosage: 20 U, QD
     Route: 058
     Dates: start: 2006
  19. OXYBUPROCAINE [Concomitant]
     Active Substance: BENOXINATE
     Indication: INTRAOCULAR PRESSURE TEST
     Dosage: 4 MG/ML, ONCE
     Dates: start: 20170403, end: 20170403
  20. AFLIBERCEPT IAI [Suspect]
     Active Substance: AFLIBERCEPT
     Dosage: 50 ?L, ONCE (OD)
     Route: 031
     Dates: start: 20160608, end: 20160608
  21. AFLIBERCEPT IAI [Suspect]
     Active Substance: AFLIBERCEPT
     Dosage: 50 ?L, ONCE (OD)
     Route: 031
     Dates: start: 20161124, end: 20161124
  22. AFLIBERCEPT IAI [Suspect]
     Active Substance: AFLIBERCEPT
     Dosage: 50 ?L, ONCE  (OD)
     Route: 031
     Dates: start: 20170315, end: 20170315
  23. FLUORESCEIN [Concomitant]
     Active Substance: FLUORESCEIN
     Indication: ANGIOGRAM RETINA
     Dosage: 100 MG/ML, ONCE
     Dates: start: 20170403, end: 20170403
  24. TROPICAMIDE. [Concomitant]
     Active Substance: TROPICAMIDE
     Indication: FUNDOSCOPY NORMAL
     Dosage: 10 MG/ML, ONCE (OU)
     Route: 047
     Dates: start: 20170403, end: 20170403
  25. OXYBUPROCAINE [Concomitant]
     Active Substance: BENOXINATE
     Indication: INTRAOCULAR PRESSURE TEST ABNORMAL

REACTIONS (2)
  - Hypertensive crisis [Recovered/Resolved]
  - Iron deficiency anaemia [Recovered/Resolved]

NARRATIVE: CASE EVENT DATE: 20170424
